FAERS Safety Report 17071946 (Version 2)
Quarter: 2019Q4

REPORT INFORMATION
  Report Type: Spontaneous
  Country: SE (occurrence: SE)
  Receive Date: 20191125
  Receipt Date: 20191203
  Transmission Date: 20200122
  Serious: Yes (Hospitalization)
  Sender: FDA-Public Use
  Company Number: SE-PFIZER INC-2019506458

PATIENT
  Sex: Female

DRUGS (5)
  1. ZOPICLONE [Suspect]
     Active Substance: ZOPICLONE
     Dosage: 240 MG, UNK
     Route: 048
     Dates: start: 20180829, end: 20180829
  2. CITALOPRAM [Suspect]
     Active Substance: CITALOPRAM HYDROBROMIDE
     Dosage: 420 MG, UNK
     Dates: start: 20180829, end: 20180829
  3. NOZINAN [LEVOMEPROMAZINE] [Suspect]
     Active Substance: LEVOMEPROMAZINE
     Dosage: 4200 MG, UNK
     Dates: start: 20180829, end: 20180829
  4. LYRICA [Suspect]
     Active Substance: PREGABALIN
     Dosage: UP TO 4000 MG
     Route: 048
     Dates: start: 20180829, end: 20180829
  5. LERGIGAN [PROMETHAZINE HYDROCHLORIDE] [Suspect]
     Active Substance: PROMETHAZINE HYDROCHLORIDE
     Dosage: 3200 MG, UNK
     Route: 048
     Dates: start: 20180829, end: 20180829

REACTIONS (5)
  - Depressed level of consciousness [Unknown]
  - Akathisia [Unknown]
  - Mydriasis [Unknown]
  - Intentional overdose [Unknown]
  - Intentional self-injury [Unknown]

NARRATIVE: CASE EVENT DATE: 20180829
